FAERS Safety Report 7311595-2 (Version None)
Quarter: 2011Q1

REPORT INFORMATION
  Report Type: 
  Country: None (occurrence: None)
  Receive Date: 20110224
  Receipt Date: 20110215
  Transmission Date: 20110831
  Serious: Yes (Other)
  Sender: FDA-Public Use
  Company Number: US-PFIZER INC-2010149732

PATIENT
  Sex: Male

DRUGS (5)
  1. CLONIDINE [Concomitant]
     Indication: GROWTH HORMONE DEFICIENCY
     Dosage: UNK
     Dates: start: 20101115, end: 20101115
  2. CLARITIN [Concomitant]
     Dosage: UNK
  3. R-GENE [Suspect]
     Indication: GROWTH HORMONE DEFICIENCY
     Dosage: 10 %, UNK
     Route: 042
     Dates: start: 20101115, end: 20101115
  4. NASONEX [Concomitant]
     Dosage: UNK
  5. SINGULAIR [Concomitant]
     Dosage: UNK

REACTIONS (4)
  - THROAT IRRITATION [None]
  - COUGH [None]
  - DYSPHONIA [None]
  - CHEST DISCOMFORT [None]
